FAERS Safety Report 8734124 (Version 2)
Quarter: 2012Q4

REPORT INFORMATION
  Report Type: 
  Country: US (occurrence: US)
  Receive Date: 20120821
  Receipt Date: 20120914
  Transmission Date: 20130627
  Serious: No
  Sender: FDA-Public Use
  Company Number: US-ASTRAZENECA-2012SE56909

PATIENT
  Age: 44 Year
  Sex: Female

DRUGS (2)
  1. NEXIUM [Suspect]
     Route: 048
  2. NEXIUM [Suspect]
     Route: 048

REACTIONS (4)
  - Chest pain [Unknown]
  - Dyspepsia [Unknown]
  - Drug intolerance [Unknown]
  - Intercepted drug prescribing error [Unknown]
